FAERS Safety Report 15582568 (Version 2)
Quarter: 2020Q4

REPORT INFORMATION
  Report Type: Spontaneous
  Country: JP (occurrence: JP)
  Receive Date: 20181103
  Receipt Date: 20201008
  Transmission Date: 20210113
  Serious: Yes (Other)
  Sender: FDA-Public Use
  Company Number: JP-ACCORD-090789

PATIENT
  Age: 72 Year
  Sex: Male

DRUGS (2)
  1. GEMCITABINE/GEMCITABINE HYDROCHLORIDE [Suspect]
     Active Substance: GEMCITABINE\GEMCITABINE HYDROCHLORIDE
     Indication: PANCREATIC CARCINOMA METASTATIC
  2. PACLITAXEL/PACLITAXEL LIPOSOME [Suspect]
     Active Substance: PACLITAXEL
     Indication: PANCREATIC CARCINOMA METASTATIC

REACTIONS (2)
  - Neuropathy peripheral [Unknown]
  - Myelosuppression [Unknown]
